FAERS Safety Report 15629556 (Version 1)
Quarter: 2018Q4

REPORT INFORMATION
  Report Type: Spontaneous
  Country: NL (occurrence: NL)
  Receive Date: 20181117
  Receipt Date: 20181117
  Transmission Date: 20190205
  Serious: Yes (Hospitalization, Other)
  Sender: FDA-Public Use
  Company Number: NL-AUROBINDO-AUR-APL-2018-055441

PATIENT
  Sex: Female
  Weight: 3 kg

DRUGS (1)
  1. PAROXETIN FILM-COATED TABLET 20MG [Suspect]
     Active Substance: PAROXETINE
     Indication: DEPRESSION
     Dosage: 20 MILLIGRAM, ONCE A DAY (1DD1)
     Route: 065

REACTIONS (2)
  - Persistent foetal circulation [Recovering/Resolving]
  - Foetal exposure during pregnancy [Unknown]
